FAERS Safety Report 9449344 (Version 1)
Quarter: 2013Q3

REPORT INFORMATION
  Report Type: Spontaneous
  Country: PH (occurrence: PH)
  Receive Date: 20130808
  Receipt Date: 20130808
  Transmission Date: 20140515
  Serious: Yes (Death, Other)
  Sender: FDA-Public Use
  Company Number: PH-009507513-1308PHL002279

PATIENT
  Age: 42 Year
  Sex: Male

DRUGS (1)
  1. JANUMET [Suspect]
     Dosage: ONCE A DAY

REACTIONS (2)
  - Myocardial infarction [Fatal]
  - Respiratory disorder [Fatal]
